FAERS Safety Report 25488714 (Version 2)
Quarter: 2025Q3

REPORT INFORMATION
  Report Type: Report from Study
  Country: US (occurrence: US)
  Receive Date: 20250627
  Receipt Date: 20250709
  Transmission Date: 20251021
  Serious: Yes (Other)
  Sender: MALLINCKRODT
  Company Number: US-MALLINCKRODT-MNK202503533

PATIENT
  Sex: Female

DRUGS (2)
  1. CORTICOTROPIN [Suspect]
     Active Substance: CORTICOTROPIN
     Indication: Ulcerative keratitis
  2. CORTICOTROPIN [Suspect]
     Active Substance: CORTICOTROPIN

REACTIONS (8)
  - Ulcerative keratitis [Unknown]
  - Condition aggravated [Unknown]
  - Dyspnoea [Unknown]
  - Weight increased [Unknown]
  - Somnolence [Unknown]
  - Memory impairment [Unknown]
  - Injection site bruising [Unknown]
  - Fatigue [Unknown]
